FAERS Safety Report 8417961-6 (Version None)
Quarter: 2012Q2

REPORT INFORMATION
  Report Type: 
  Country: None (occurrence: None)
  Receive Date: 20120531
  Receipt Date: 20120531
  Transmission Date: 20120825
  Serious: Yes (Other)
  Sender: FDA-Public Use
  Company Number: None

PATIENT
  Age: 21 Year
  Sex: Female
  Weight: 64.8644 kg

DRUGS (1)
  1. AMPHETAMINE AND DEXTROAMPHETAMINE SALTS [Suspect]
     Indication: ATTENTION DEFICIT/HYPERACTIVITY DISORDER
     Dosage: 20MG QAM PO
     Route: 048
     Dates: start: 20111217, end: 20120216

REACTIONS (4)
  - RESTLESSNESS [None]
  - MANIA [None]
  - AMNESIA [None]
  - DECREASED APPETITE [None]
